FAERS Safety Report 5199146-2 (Version None)
Quarter: 2006Q4

REPORT INFORMATION
  Report Type: 
  Country: None (occurrence: None)
  Receive Date: 20061016
  Receipt Date: 20060615
  Transmission Date: 20070319
  Serious: No
  Sender: FDA-Public Use
  Company Number: 2006SP002352

PATIENT
  Age: 53 Year
  Sex: Male

DRUGS (2)
  1. LUNESTA [Suspect]
     Indication: SLEEP PHASE RHYTHM DISTURBANCE
     Dosage: 1 MG;PRN;ORAL
     Route: 048
     Dates: start: 20051001, end: 20060101
  2. SKELAXIN [Concomitant]

REACTIONS (2)
  - DRUG INEFFECTIVE [None]
  - INSOMNIA [None]
